FAERS Safety Report 7004757-5 (Version None)
Quarter: 2010Q3

REPORT INFORMATION
  Report Type: 
  Country: None (occurrence: None)
  Receive Date: 20100921
  Receipt Date: 20100910
  Transmission Date: 20110219
  Serious: No
  Sender: FDA-Public Use
  Company Number: US-JNJFOC-20100904522

PATIENT
  Age: 53 Year
  Sex: Male
  Weight: 123.38 kg

DRUGS (1)
  1. FENTANYL CITRATE [Suspect]
     Indication: HIP DYSPLASIA
     Route: 062
     Dates: start: 20090101

REACTIONS (3)
  - DRUG ADMINISTRATION ERROR [None]
  - DRUG INEFFECTIVE [None]
  - WRONG TECHNIQUE IN DRUG USAGE PROCESS [None]
